FAERS Safety Report 17831589 (Version 1)
Quarter: 2020Q2

REPORT INFORMATION
  Report Type: Spontaneous
  Country: GB (occurrence: GB)
  Receive Date: 20200528
  Receipt Date: 20200528
  Transmission Date: 20200714
  Serious: Yes (Life-Threatening)
  Sender: FDA-Public Use
  Company Number: GB-TEVA-2020-GB-1240011

PATIENT
  Age: 87 Year

DRUGS (13)
  1. GENTAMICIN. [Suspect]
     Active Substance: GENTAMICIN
     Indication: BILIARY SEPSIS
     Dosage: 560MG
     Dates: start: 20190914, end: 20190916
  2. FOSTAIR [Concomitant]
     Active Substance: BECLOMETHASONE\FORMOTEROL
     Dosage: 100MICROGRAMS/DOSE / 6MICROGRAMS/DOSE,4 DOSAGE FORMS
     Route: 055
  3. GENTAMICIN. [Suspect]
     Active Substance: GENTAMICIN
     Dosage: 280 MG
     Dates: start: 20190912
  4. FUROSEMIDE. [Suspect]
     Active Substance: FUROSEMIDE
     Indication: CARDIAC FAILURE
     Dosage: 80 MG
     Dates: start: 20120918
  5. LINAGLIPTIN [Concomitant]
     Active Substance: LINAGLIPTIN
     Dosage: 5 MG
  6. OMEPRAZOLE. [Concomitant]
     Active Substance: OMEPRAZOLE
     Dosage: 40 MG
  7. LATANOPROST. [Concomitant]
     Active Substance: LATANOPROST
     Dosage: ONE DROP TO BE USED AT NIGHT (BOTH EYES). 50UG/ML
  8. SPIRONOLACTONE. [Suspect]
     Active Substance: SPIRONOLACTONE
     Indication: CARDIAC FAILURE
     Dosage: 25 MILLIGRAM DAILY; MORNING
     Dates: start: 20190916
  9. CALCICHEW D3 [Concomitant]
     Active Substance: CALCIUM\CHOLECALCIFEROL
     Dosage: 2 DOSAGE FORMS
  10. SALAMOL [Concomitant]
     Active Substance: ALBUTEROL
     Dosage: EASI-BREATHE INHALER ONE OR TWO PUFFS WHEN REQUIRED - PT HAS METERED DOSE IHALER
  11. BETAHISTINE [Concomitant]
     Active Substance: BETAHISTINE
     Dosage: WITH MEALS,24 MG
  12. PARACETAMOL [Concomitant]
     Active Substance: ACETAMINOPHEN
     Dosage: TWO TO BE TAKEN EVERY 4-6 HOURS UP TO FOUR TIMES A DAY
  13. DULOXETINE. [Concomitant]
     Active Substance: DULOXETINE
     Dosage: 20 MILLIGRAM DAILY; MORNING

REACTIONS (3)
  - Acute kidney injury [Recovered/Resolved]
  - Inappropriate schedule of product administration [Unknown]
  - Antibiotic level above therapeutic [Unknown]

NARRATIVE: CASE EVENT DATE: 201909
